FAERS Safety Report 8882946 (Version 1)
Quarter: 2012Q4

REPORT INFORMATION
  Report Type: Report from Study
  Country: CH (occurrence: DE)
  Receive Date: 20121105
  Receipt Date: 20121105
  Transmission Date: 20130627
  Serious: Yes (Hospitalization)
  Sender: FDA-Public Use
  Company Number: CH-ACTELION-A-CH2012-73477

PATIENT
  Age: 43 Year
  Sex: Female
  Weight: 66 kg

DRUGS (6)
  1. TRACLEER [Suspect]
     Indication: DIGITAL ULCER
     Dosage: 125 mg, bid
     Route: 048
     Dates: start: 20080915, end: 201112
  2. TRACLEER [Suspect]
     Dosage: 62.5 mg, bid
     Route: 048
     Dates: start: 20080901, end: 20080914
  3. LEVOTHYROXIN [Concomitant]
     Dosage: UNK
  4. RAMIPRIL [Concomitant]
     Dosage: UNK
  5. OMEPRAZOL [Concomitant]
     Dosage: UNK
  6. ASS [Concomitant]
     Dosage: UNK

REACTIONS (2)
  - Skin ulcer [Recovered/Resolved]
  - Disease progression [Recovered/Resolved]
